FAERS Safety Report 4611108-X (Version None)
Quarter: 2005Q1

REPORT INFORMATION
  Report Type: 
  Country: None (occurrence: None)
  Receive Date: 20050316
  Receipt Date: 20050316
  Transmission Date: 20050727
  Serious: No
  Sender: FDA-Public Use
  Company Number: None

PATIENT
  Age: 54 Year
  Sex: Female
  Weight: 81.6475 kg

DRUGS (3)
  1. CIPROFLOXACIN HCL [Suspect]
     Indication: URINARY TRACT INFECTION
     Dosage: ORAL 2 X DAY
     Route: 048
  2. NITROFURANTOIN [Suspect]
     Indication: URINARY TRACT INFECTION
     Dosage: SAME AS ABOVE
     Route: 048
  3. LEVAQUIN [Suspect]

REACTIONS (5)
  - ARTHROPATHY [None]
  - JOINT SWELLING [None]
  - MUSCULAR WEAKNESS [None]
  - PAIN [None]
  - THERAPY NON-RESPONDER [None]
